FAERS Safety Report 14635396 (Version 1)
Quarter: 2018Q1

REPORT INFORMATION
  Report Type: Spontaneous
  Country: US (occurrence: US)
  Receive Date: 20180313
  Receipt Date: 20180313
  Transmission Date: 20180509
  Serious: Yes (Hospitalization)
  Sender: FDA-Public Use
  Company Number: None

PATIENT
  Age: 25 Year
  Sex: Male

DRUGS (5)
  1. EPINEPHRINE. [Concomitant]
     Active Substance: EPINEPHRINE
  2. XOLAIR [Suspect]
     Active Substance: OMALIZUMAB
     Indication: URTICARIA
     Dosage: FREQUENCY - EVERY 28 DAYS
     Route: 058
     Dates: start: 20171114
  3. CYCLOSPORINE. [Concomitant]
     Active Substance: CYCLOSPORINE
  4. PREDNISONE. [Concomitant]
     Active Substance: PREDNISONE
  5. WAL-FEX ALLR [Concomitant]

REACTIONS (2)
  - Cholelithiasis [None]
  - Surgery [None]

NARRATIVE: CASE EVENT DATE: 20170212
